FAERS Safety Report 5334028-4 (Version None)
Quarter: 2007Q2

REPORT INFORMATION
  Report Type: 
  Country: None (occurrence: None)
  Receive Date: 20070524
  Receipt Date: 20070522
  Transmission Date: 20071010
  Serious: Yes (Hospitalization)
  Sender: FDA-Public Use
  Company Number: US-ROXANE LABORATORIES, INC-2007-BP-06871RO

PATIENT
  Age: 43 Year
  Sex: Female

DRUGS (4)
  1. LITHIUM CARBONATE [Suspect]
     Indication: BIPOLAR DISORDER
     Dosage: 600 MG BID
     Route: 048
  2. NAPROXEN [Suspect]
     Route: 048
  3. MIRTAZAPINE [Suspect]
     Route: 048
  4. AMITRIPTYLINE HCL [Suspect]
     Route: 048

REACTIONS (9)
  - BLOOD CREATININE INCREASED [None]
  - BRADYCARDIA [None]
  - HYPOCHLORAEMIA [None]
  - HYPOKALAEMIA [None]
  - HYPOTENSION [None]
  - HYPOTHERMIA [None]
  - METABOLIC ALKALOSIS [None]
  - SINOATRIAL BLOCK [None]
  - THERAPEUTIC AGENT TOXICITY [None]
